FAERS Safety Report 13316182 (Version 1)
Quarter: 2017Q1

REPORT INFORMATION
  Report Type: Spontaneous
  Country: GB (occurrence: GB)
  Receive Date: 20170308
  Receipt Date: 20170308
  Transmission Date: 20170428
  Serious: Yes (Death, Hospitalization, Other)
  Sender: FDA-Public Use
  Company Number: GB-INTERNATIONAL MEDICATION SYSTEMS, LIMITED-1064013

PATIENT
  Sex: Male

DRUGS (5)
  1. AMISULPRIDE [Concomitant]
     Active Substance: AMISULPRIDE
  2. ADRENALINE [Suspect]
     Active Substance: EPINEPHRINE
  3. ZAPONEX [Suspect]
     Active Substance: CLOZAPINE
  4. VASOPRESSIN. [Suspect]
     Active Substance: VASOPRESSIN
  5. NOREPINEPHRINE [Suspect]
     Active Substance: NOREPINEPHRINE\NOREPINEPHRINE BITARTRATE

REACTIONS (8)
  - Death [Fatal]
  - Colitis ischaemic [Unknown]
  - Neutrophil count increased [None]
  - Ileostomy [None]
  - Blood lactic acid increased [None]
  - Myocardial infarction [None]
  - Laparotomy [None]
  - White blood cell count increased [None]

NARRATIVE: CASE EVENT DATE: 20170202
